FAERS Safety Report 5705316-4 (Version None)
Quarter: 2008Q2

REPORT INFORMATION
  Report Type: 
  Country: None (occurrence: None)
  Receive Date: 20080410
  Receipt Date: 20080403
  Transmission Date: 20081010
  Serious: Yes (Hospitalization)
  Sender: FDA-Public Use
  Company Number: 2008-02235

PATIENT
  Age: 69 Year
  Sex: Male

DRUGS (2)
  1. ENALAPRIL MALEATE [Suspect]
     Indication: HYPERTENSION
     Dosage: 20 MG, DAILY, ORAL
     Route: 048
     Dates: start: 20061201, end: 20070201
  2. TACROLIMUS [Suspect]
     Indication: IMMUNOSUPPRESSANT DRUG THERAPY
     Dosage: ORAL
     Route: 048
     Dates: start: 20030101

REACTIONS (5)
  - DEHYDRATION [None]
  - DRUG INTERACTION [None]
  - ELECTROLYTE IMBALANCE [None]
  - GASTROENTERITIS [None]
  - RENAL FAILURE [None]
